FAERS Safety Report 15090319 (Version 1)
Quarter: 2018Q2

REPORT INFORMATION
  Report Type: Report from Study
  Country: US (occurrence: US)
  Receive Date: 20180629
  Receipt Date: 20180629
  Transmission Date: 20180711
  Serious: Yes (Hospitalization, Other)
  Sender: FDA-Public Use
  Company Number: US-PFIZER INC-2018229575

PATIENT
  Age: 10 Year
  Sex: Male
  Weight: 21.1 kg

DRUGS (12)
  1. VITAMIN D3 [Concomitant]
     Active Substance: CHOLECALCIFEROL
     Dosage: UNK
     Dates: start: 20171214
  2. TOBRAMYCIN. [Suspect]
     Active Substance: TOBRAMYCIN
     Dosage: UNK , CYCLIC (28 DAYS ON, 28 DAYS OFF, ALTERNATES WITH CAYSTON)
     Route: 065
     Dates: start: 201804, end: 20180522
  3. ALBUTEROL SULFATE. [Concomitant]
     Active Substance: ALBUTEROL SULFATE
     Dosage: UNK
     Dates: start: 20171214
  4. PROAIR HFA [Concomitant]
     Active Substance: ALBUTEROL SULFATE
     Dosage: UNK
     Dates: start: 20171214
  5. HYPERSAL [Concomitant]
     Dosage: UNK
     Dates: start: 20171214
  6. TOBRAMYCIN. [Suspect]
     Active Substance: TOBRAMYCIN
     Indication: PSEUDOMONAS INFECTION
     Dosage: RESPIRATORY, BID, 28 DAYS ON, 28 DAYS OFF, ALTERNATES WITH CAYSTON; )
     Dates: start: 20171214
  7. OMEPRAZOLE. [Concomitant]
     Active Substance: OMEPRAZOLE
     Dosage: UNK
     Dates: start: 20171214
  8. PULMOZYME [Concomitant]
     Active Substance: DORNASE ALFA
     Dosage: UNK
     Dates: start: 20171214
  9. AQUADEKS [Concomitant]
     Active Substance: MINERALS\VITAMINS
     Dosage: UNK
     Dates: start: 20170614
  10. CAYSTON [Suspect]
     Active Substance: AZTREONAM
     Indication: CYSTIC FIBROSIS
     Dosage: 75 MG, 3X/DAY
     Route: 055
     Dates: start: 20180529
  11. CAYSTON [Suspect]
     Active Substance: AZTREONAM
     Indication: PSEUDOMONAS INFECTION
     Dosage: 75 MG, CYCLIC (TID,28 DAYS ON, 28 DAYS OFF, ALTERNATES WITH TOBRAMYCIN)
     Route: 055
     Dates: start: 201804, end: 20180522
  12. FERROUSUL [Concomitant]
     Dosage: UNK
     Dates: start: 20171214

REACTIONS (5)
  - Drug ineffective [Unknown]
  - Ill-defined disorder [Unknown]
  - Oxygen saturation decreased [Not Recovered/Not Resolved]
  - Productive cough [Not Recovered/Not Resolved]
  - Malaise [Not Recovered/Not Resolved]

NARRATIVE: CASE EVENT DATE: 201804
